FAERS Safety Report 23598792 (Version 1)
Quarter: 2024Q1

REPORT INFORMATION
  Report Type: Spontaneous
  Country: US (occurrence: US)
  Receive Date: 20240306
  Receipt Date: 20240306
  Transmission Date: 20240410
  Serious: No
  Sender: FDA-Public Use
  Company Number: US-AMGEN-USASP2024036868

PATIENT
  Age: 16 Year
  Sex: Female

DRUGS (12)
  1. RITUXIMAB [Suspect]
     Active Substance: RITUXIMAB
     Indication: Cold type haemolytic anaemia
     Dosage: 375 MILLIGRAM/M2, QWK ONCE A WEEK FOR 4 CONSECUTIVE WEEKS
     Route: 042
  2. RITUXIMAB [Suspect]
     Active Substance: RITUXIMAB
     Indication: Lymphoproliferative disorder
     Dosage: 375 MILLIGRAM, QWK
     Route: 042
  3. FLUDARABINE [Concomitant]
     Active Substance: FLUDARABINE PHOSPHATE
     Indication: Cold type haemolytic anaemia
     Dosage: UNK
     Route: 065
  4. FLUDARABINE [Concomitant]
     Active Substance: FLUDARABINE PHOSPHATE
     Indication: Lymphoproliferative disorder
  5. BENDAMUSTINE [Concomitant]
     Active Substance: BENDAMUSTINE
     Indication: Cold type haemolytic anaemia
     Dosage: UNK
     Route: 042
  6. BENDAMUSTINE [Concomitant]
     Active Substance: BENDAMUSTINE
     Indication: Lymphoproliferative disorder
     Dosage: 90 MILLIGRAM/M2 DAYS 1 AND 2 EVERY 28 DAYS FOR FOUR 28-DAY CYCLES
     Route: 042
  7. BORTEZOMIB [Concomitant]
     Active Substance: BORTEZOMIB
     Indication: Cold type haemolytic anaemia
     Dosage: UNK
     Route: 065
  8. BORTEZOMIB [Concomitant]
     Active Substance: BORTEZOMIB
     Indication: Lymphoproliferative disorder
  9. ECULIZUMAB [Concomitant]
     Active Substance: ECULIZUMAB
     Indication: Cold type haemolytic anaemia
     Dosage: UNK
     Route: 065
  10. ECULIZUMAB [Concomitant]
     Active Substance: ECULIZUMAB
     Indication: Lymphoproliferative disorder
  11. SUTIMLIMAB [Concomitant]
     Active Substance: SUTIMLIMAB
     Indication: Cold type haemolytic anaemia
     Dosage: UNK
     Route: 065
  12. SUTIMLIMAB [Concomitant]
     Active Substance: SUTIMLIMAB
     Indication: Lymphoproliferative disorder

REACTIONS (4)
  - Drug effective for unapproved indication [Unknown]
  - Haemoglobin decreased [Recovered/Resolved]
  - Off label use [Unknown]
  - Blood immunoglobulin M increased [Recovering/Resolving]
